FAERS Safety Report 5974873-5 (Version None)
Quarter: 2008Q4

REPORT INFORMATION
  Report Type: 
  Country: None (occurrence: None)
  Receive Date: 20081202
  Receipt Date: 20081119
  Transmission Date: 20090506
  Serious: Yes (Other)
  Sender: FDA-Public Use
  Company Number: CZ-PFIZER INC-2008098824

PATIENT
  Age: 75 Year
  Sex: Male

DRUGS (2)
  1. VARENICLINE TABLETS [Suspect]
     Indication: SMOKING CESSATION THERAPY
     Route: 048
  2. FLUOXETINE [Concomitant]
     Route: 048

REACTIONS (1)
  - DEPRESSION [None]
